FAERS Safety Report 4704290-7 (Version None)
Quarter: 2005Q2

REPORT INFORMATION
  Report Type: 
  Country: None (occurrence: None)
  Receive Date: 20050629
  Receipt Date: 20050621
  Transmission Date: 20051028
  Serious: Yes (Death, Hospitalization)
  Sender: FDA-Public Use
  Company Number: MEDI-0003045

PATIENT
  Age: 5 Month
  Sex: Male
  Weight: 5.81 kg

DRUGS (6)
  1. SYNAGIS [Suspect]
     Indication: ANTIVIRAL PROPHYLAXIS
     Dosage: 0.87 ML, 1 IN 30 D, INTRAMUSCULAR
     Route: 030
     Dates: start: 20041207, end: 20050208
  2. SYNAGIS [Suspect]
     Dosage: 0.8 ML, 1 IN 30 D, INTRAMUSCULAR
     Route: 030
     Dates: start: 20041207
  3. SYNAGIS [Suspect]
     Dosage: 0.85 ML, 1 IN 30 D, INTRAMUSCULAR
     Route: 030
     Dates: start: 20050104
  4. SYNAGIS [Suspect]
     Dosage: 0.87 ML, 1 IN 30 D, INTRAMUSCULAR
     Route: 030
     Dates: start: 20050308, end: 20050308
  5. DIGOXIN [Concomitant]
  6. PHENOBARBITAL TAB [Concomitant]

REACTIONS (5)
  - CHILD ABUSE [None]
  - PYREXIA [None]
  - URINARY TRACT INFECTION [None]
  - VICTIM OF HOMICIDE [None]
  - WHITE BLOOD CELL COUNT INCREASED [None]
